FAERS Safety Report 4355972-0 (Version None)
Quarter: 2004Q2

REPORT INFORMATION
  Report Type: 
  Country: None (occurrence: None)
  Receive Date: 20040507
  Receipt Date: 20040507
  Transmission Date: 20050107
  Serious: No
  Sender: FDA-Public Use
  Company Number: None

PATIENT
  Sex: Female

DRUGS (1)
  1. PERCOCET-5 [Suspect]
     Indication: NAUSEA
     Dosage: TID

REACTIONS (1)
  - NAUSEA [None]
